FAERS Safety Report 10025044 (Version 2)
Quarter: 2014Q1

REPORT INFORMATION
  Report Type: Report from Study
  Country: US (occurrence: None)
  Receive Date: 20140210
  Receipt Date: 20140225
  Transmission Date: 20141002
  Serious: Yes (Hospitalization)
  Sender: FDA-Public Use
  Company Number: 2013SA131109

PATIENT
  Age: 58 Year
  Sex: Female

DRUGS (1)
  1. AUBAGIO [Suspect]
     Indication: MULTIPLE SCLEROSIS
     Route: 048
     Dates: start: 20131206

REACTIONS (8)
  - Dehydration [None]
  - Fatigue [None]
  - Asthenia [None]
  - Gait disturbance [None]
  - Abdominal distension [None]
  - Bronchitis [None]
  - Drug dose omission [None]
  - Dysstasia [None]
